FAERS Safety Report 8889033 (Version 1)
Quarter: 2012Q4

REPORT INFORMATION
  Report Type: 
  Country: US (occurrence: US)
  Receive Date: 20121106
  Receipt Date: 20121106
  Transmission Date: 20130627
  Serious: No
  Sender: FDA-Public Use
  Company Number: US-009507513-1211USA001397

PATIENT
  Age: 46 Year
  Sex: Male

DRUGS (2)
  1. SINGULAIR [Suspect]
     Indication: SEASONAL ALLERGY
     Dosage: 10 mg, frequency unspecified
     Route: 048
  2. LIPITOR [Concomitant]

REACTIONS (2)
  - Upper respiratory tract infection [Unknown]
  - Drug ineffective [Not Recovered/Not Resolved]
